FAERS Safety Report 8406596-7 (Version None)
Quarter: 2012Q2

REPORT INFORMATION
  Report Type: 
  Country: None (occurrence: None)
  Receive Date: 20120604
  Receipt Date: 20120529
  Transmission Date: 20120825
  Serious: Yes (Other)
  Sender: FDA-Public Use
  Company Number: SG-B.I. PHARMACEUTICALS,INC./RIDGEFIELD-2012-CS-00767MD

PATIENT
  Age: 58 Year
  Sex: Male

DRUGS (2)
  1. OMEPRAZOLE [Suspect]
     Indication: ABDOMINAL DISCOMFORT
     Dosage: 80 MG
     Route: 048
     Dates: start: 20110406, end: 20110621
  2. MICARDIS [Suspect]
     Indication: HYPERTENSION
     Dosage: 40 MG
     Route: 048
     Dates: start: 20110428, end: 20110621

REACTIONS (2)
  - LICHENOID KERATOSIS [None]
  - EOSINOPHIL COUNT [None]
